FAERS Safety Report 17535919 (Version 13)
Quarter: 2024Q2

REPORT INFORMATION
  Report Type: Report from Study
  Country: CA (occurrence: None)
  Receive Date: 20200313
  Receipt Date: 20240429
  Transmission Date: 20240715
  Serious: Yes (Hospitalization, Other)
  Sender: FDA-Public Use
  Company Number: CA-ORION CORPORATION ORION PHARMA-TREX2020-1300

PATIENT
  Age: 74 Year
  Sex: Female
  Weight: 90 kg

DRUGS (53)
  1. METHOTREXATE [Suspect]
     Active Substance: METHOTREXATE
     Indication: Product used for unknown indication
  2. ACTEMRA [Suspect]
     Active Substance: TOCILIZUMAB
     Indication: Rheumatoid arthritis
     Dosage: MONTHLY
  3. ACTEMRA [Suspect]
     Active Substance: TOCILIZUMAB
  4. ACTEMRA [Suspect]
     Active Substance: TOCILIZUMAB
  5. ACTEMRA [Suspect]
     Active Substance: TOCILIZUMAB
  6. ACTEMRA [Suspect]
     Active Substance: TOCILIZUMAB
     Dosage: MONTHLY
  7. ACTEMRA [Suspect]
     Active Substance: TOCILIZUMAB
     Dosage: MONTHLY
  8. ACTEMRA [Suspect]
     Active Substance: TOCILIZUMAB
     Dosage: MONTHLY
  9. ACTEMRA [Suspect]
     Active Substance: TOCILIZUMAB
     Dosage: MONTHLY
  10. ACTEMRA [Suspect]
     Active Substance: TOCILIZUMAB
  11. ACTEMRA [Suspect]
     Active Substance: TOCILIZUMAB
  12. ACTEMRA [Suspect]
     Active Substance: TOCILIZUMAB
  13. ACTEMRA [Suspect]
     Active Substance: TOCILIZUMAB
  14. ACTEMRA [Suspect]
     Active Substance: TOCILIZUMAB
  15. ACTEMRA [Suspect]
     Active Substance: TOCILIZUMAB
  16. RITUXIMAB [Suspect]
     Active Substance: RITUXIMAB
     Indication: Rheumatoid arthritis
  17. RITUXIMAB [Suspect]
     Active Substance: RITUXIMAB
     Dosage: EVERY 15 DAYS
  18. RITUXIMAB [Suspect]
     Active Substance: RITUXIMAB
  19. RITUXIMAB [Suspect]
     Active Substance: RITUXIMAB
  20. RITUXIMAB [Suspect]
     Active Substance: RITUXIMAB
     Dosage: MONTHLY
  21. RITUXIMAB [Suspect]
     Active Substance: RITUXIMAB
  22. RITUXIMAB [Suspect]
     Active Substance: RITUXIMAB
  23. RITUXIMAB [Suspect]
     Active Substance: RITUXIMAB
  24. RITUXIMAB [Suspect]
     Active Substance: RITUXIMAB
  25. RITUXIMAB [Suspect]
     Active Substance: RITUXIMAB
  26. RITUXIMAB [Suspect]
     Active Substance: RITUXIMAB
     Dosage: MONTHLY
  27. RITUXIMAB [Suspect]
     Active Substance: RITUXIMAB
     Dosage: MONTHLY
  28. RITUXIMAB [Suspect]
     Active Substance: RITUXIMAB
     Dosage: EVERY 15 DAYS
  29. ASPIRIN [Concomitant]
     Active Substance: ASPIRIN
  30. ACTONEL [Concomitant]
     Active Substance: RISEDRONATE SODIUM
  31. ALENDRONATE SODIUM;VITAMIN D [Concomitant]
  32. CALCIUM [Concomitant]
     Active Substance: CALCIUM
  33. DIPHENHYDRAMINE HYDROCHLORIDE [Concomitant]
     Active Substance: DIPHENHYDRAMINE HYDROCHLORIDE
     Indication: Premedication
  34. MAGNESIUM [Concomitant]
     Active Substance: MAGNESIUM
  35. METHYLPREDNISOLONE [Concomitant]
     Active Substance: METHYLPREDNISOLONE
     Indication: Premedication
  36. MICARDIS [Concomitant]
     Active Substance: TELMISARTAN
  37. MICARDIS [Concomitant]
     Active Substance: TELMISARTAN
  38. MICARDIS [Concomitant]
     Active Substance: TELMISARTAN
  39. MORPHINE [Concomitant]
     Active Substance: MORPHINE
  40. MORPHINE [Concomitant]
     Active Substance: MORPHINE
  41. PREDNISONE [Concomitant]
     Active Substance: PREDNISONE
  42. PREDNISONE [Concomitant]
     Active Substance: PREDNISONE
  43. ZYLOPRIM [Concomitant]
     Active Substance: ALLOPURINOL
  44. ZYLOPRIM [Concomitant]
     Active Substance: ALLOPURINOL
  45. ZYLOPRIM [Concomitant]
     Active Substance: ALLOPURINOL
  46. ACETAMINOPHEN [Concomitant]
     Active Substance: ACETAMINOPHEN
     Indication: Premedication
  47. ACETAMINOPHEN [Concomitant]
     Active Substance: ACETAMINOPHEN
  48. DENOSUMAB [Concomitant]
     Active Substance: DENOSUMAB
  49. DENOSUMAB [Concomitant]
     Active Substance: DENOSUMAB
  50. RANITIDINE [Concomitant]
     Active Substance: RANITIDINE
  51. RISEDRONATE SODIUM [Concomitant]
     Active Substance: RISEDRONATE SODIUM
  52. ALENDRONATE SODIUM\CHOLECALCIFEROL [Concomitant]
     Active Substance: ALENDRONATE SODIUM\CHOLECALCIFEROL
  53. RANITIDINE HYDROCHLORIDE [Concomitant]
     Active Substance: RANITIDINE HYDROCHLORIDE

REACTIONS (37)
  - Drug ineffective [Not Recovered/Not Resolved]
  - Abdominal distension [Not Recovered/Not Resolved]
  - Arthralgia [Not Recovered/Not Resolved]
  - Back pain [Not Recovered/Not Resolved]
  - Blood cholesterol increased [Not Recovered/Not Resolved]
  - Blood pressure diastolic increased [Not Recovered/Not Resolved]
  - Blood pressure increased [Not Recovered/Not Resolved]
  - Blood pressure systolic abnormal [Not Recovered/Not Resolved]
  - Blood pressure systolic increased [Not Recovered/Not Resolved]
  - Body temperature decreased [Not Recovered/Not Resolved]
  - Cellulitis [Not Recovered/Not Resolved]
  - Contusion [Not Recovered/Not Resolved]
  - Erythema [Not Recovered/Not Resolved]
  - Fall [Not Recovered/Not Resolved]
  - Family stress [Not Recovered/Not Resolved]
  - Hypotension [Not Recovered/Not Resolved]
  - Infected skin ulcer [Not Recovered/Not Resolved]
  - Joint injury [Not Recovered/Not Resolved]
  - Joint swelling [Not Recovered/Not Resolved]
  - Lower respiratory tract infection [Not Recovered/Not Resolved]
  - Pain in extremity [Not Recovered/Not Resolved]
  - Productive cough [Not Recovered/Not Resolved]
  - Skin laceration [Not Recovered/Not Resolved]
  - Weight decreased [Not Recovered/Not Resolved]
  - Weight increased [Not Recovered/Not Resolved]
  - Meniscus injury [Not Recovered/Not Resolved]
  - Tremor [Not Recovered/Not Resolved]
  - Oxygen saturation decreased [Not Recovered/Not Resolved]
  - Blood pressure systolic decreased [Not Recovered/Not Resolved]
  - Heart rate decreased [Not Recovered/Not Resolved]
  - Cholecystectomy [Not Recovered/Not Resolved]
  - Ill-defined disorder [Not Recovered/Not Resolved]
  - Muscular weakness [Not Recovered/Not Resolved]
  - Mobility decreased [Not Recovered/Not Resolved]
  - Swelling [Not Recovered/Not Resolved]
  - Blood pressure diastolic abnormal [Not Recovered/Not Resolved]
  - Blood pressure diastolic decreased [Not Recovered/Not Resolved]
